FAERS Safety Report 9600289 (Version 1)
Quarter: 2013Q4

REPORT INFORMATION
  Report Type: Spontaneous
  Country: US (occurrence: US)
  Receive Date: 20131004
  Receipt Date: 20131004
  Transmission Date: 20140711
  Serious: No
  Sender: FDA-Public Use
  Company Number: US-AMGEN-USASP2013033102

PATIENT
  Age: 50 Year
  Sex: Female
  Weight: 81.63 kg

DRUGS (16)
  1. ENBREL [Suspect]
     Indication: PRODUCT USED FOR UNKNOWN INDICATION
     Dosage: 50 MG, QWK
     Route: 058
  2. METHOTREXATE [Concomitant]
     Dosage: UNK
  3. PREDNISONE [Concomitant]
     Dosage: 5 MG, UNK
  4. MULTIVITAMINS, PLAIN [Concomitant]
     Dosage: UNK
  5. FISH OIL [Concomitant]
     Dosage: UNK
  6. MECLIZINE                          /00072801/ [Concomitant]
     Dosage: 25 MG, UNK
  7. CLONAZEPAM [Concomitant]
     Dosage: 1 MG, UNK
  8. BIAXIN XL [Concomitant]
     Dosage: 500 MG, UNK
  9. GABAPENTIN [Concomitant]
     Dosage: 100 MG, UNK
  10. METOPROLOL [Concomitant]
     Dosage: 100 MG ER
  11. SIMVASTATIN [Concomitant]
     Dosage: 10 MG, UNK
  12. FENOFIBRATE [Concomitant]
     Dosage: 130 MG, UNK
  13. ADVAIR [Concomitant]
     Dosage: 100/50
  14. PROAIR HFA [Concomitant]
     Dosage: UNK
  15. FLONASE [Concomitant]
     Dosage: UNK
  16. TYLENOL                            /00020001/ [Concomitant]
     Dosage: 325 MG, UNK

REACTIONS (3)
  - Sinusitis [Unknown]
  - Bronchitis [Unknown]
  - Infection [Unknown]
